FAERS Safety Report 5713253-4 (Version None)
Quarter: 2008Q2

REPORT INFORMATION
  Report Type: 
  Country: None (occurrence: None)
  Receive Date: 20080422
  Receipt Date: 20080415
  Transmission Date: 20081010
  Serious: Yes (Hospitalization)
  Sender: FDA-Public Use
  Company Number: PHHY2008JP04883

PATIENT
  Age: 87 Year
  Sex: Male

DRUGS (4)
  1. CAFERGOT [Suspect]
     Indication: DIZZINESS
     Dosage: UNK, UNK
     Route: 048
     Dates: start: 20080322
  2. UBRETID [Concomitant]
  3. NU-LOTAN [Concomitant]
  4. JUVELA [Concomitant]

REACTIONS (2)
  - MALAISE [None]
  - PLATELET COUNT DECREASED [None]
